FAERS Safety Report 19129854 (Version 1)
Quarter: 2021Q2

REPORT INFORMATION
  Report Type: Spontaneous
  Country: US (occurrence: US)
  Receive Date: 20210414
  Receipt Date: 20210414
  Transmission Date: 20210717
  Serious: Yes (Death, Hospitalization, Other)
  Sender: FDA-Public Use
  Company Number: US-AMGEN-USASP2021052928

PATIENT
  Age: 72 Year
  Sex: Female

DRUGS (11)
  1. METHOTREXATE. [Concomitant]
     Active Substance: METHOTREXATE
     Dosage: UNK
  2. PONATINIB [Concomitant]
     Active Substance: PONATINIB
     Dosage: UNK
  3. FILGRASTIM [Suspect]
     Active Substance: FILGRASTIM
     Indication: PROPHYLAXIS
     Dosage: UNK
     Route: 065
  4. DOVITINIB [Concomitant]
     Active Substance: DOVITINIB LACTATE
     Dosage: UNK
  5. IDARUBICIN [Concomitant]
     Active Substance: IDARUBICIN
     Dosage: UNK
  6. CYCLOPHOSPHAMIDE. [Concomitant]
     Active Substance: CYCLOPHOSPHAMIDE
     Dosage: UNK
  7. VINCRISTINE [Concomitant]
     Active Substance: VINCRISTINE
     Dosage: UNK
  8. DOXORUBICIN [Concomitant]
     Active Substance: DOXORUBICIN
     Dosage: UNK
  9. DEXAMETHASONE. [Concomitant]
     Active Substance: DEXAMETHASONE
     Dosage: UNK
  10. CYTARABINE. [Concomitant]
     Active Substance: CYTARABINE
     Dosage: UNK
  11. FLUDARABINE [Concomitant]
     Active Substance: FLUDARABINE PHOSPHATE
     Dosage: UNK

REACTIONS (4)
  - Pneumonia fungal [Unknown]
  - Gene mutation [Unknown]
  - Myelodysplastic syndrome [Unknown]
  - Leukaemia recurrent [Fatal]
